FAERS Safety Report 7443455-0 (Version None)
Quarter: 2011Q2

REPORT INFORMATION
  Report Type: 
  Country: None (occurrence: None)
  Receive Date: 20110428
  Receipt Date: 20110317
  Transmission Date: 20111010
  Serious: Yes (Disabling)
  Sender: FDA-Public Use
  Company Number: CH-AMGEN-CHESP2010003760

PATIENT
  Age: 72 Year
  Sex: Female
  Weight: 60 kg

DRUGS (2)
  1. ENBREL [Suspect]
     Indication: RHEUMATOID ARTHRITIS
     Dosage: UNK
     Route: 058
     Dates: start: 20100920, end: 20101101
  2. METHOTREXATE [Concomitant]
     Dosage: UNK

REACTIONS (2)
  - RETINAL VEIN THROMBOSIS [None]
  - MACULAR OEDEMA [None]
